FAERS Safety Report 4958982-5 (Version None)
Quarter: 2006Q1

REPORT INFORMATION
  Report Type: 
  Country: None (occurrence: None)
  Receive Date: 20060328
  Receipt Date: 20060313
  Transmission Date: 20060701
  Serious: Yes (Other)
  Sender: FDA-Public Use
  Company Number: T200600057

PATIENT
  Age: 54 Year
  Sex: Male
  Weight: 85.3 kg

DRUGS (4)
  1. HYDROCODONE/APAP (HYDROCODONE BITARTRATE, ACETAMINOPHEN) TABLET, 5/500 [Suspect]
     Indication: PAIN
     Dosage: 5/500 MG (2 TABLETS), SINGLE, ORAL
     Route: 048
     Dates: start: 20041018, end: 20041018
  2. VICODIN [Suspect]
     Indication: PAIN
  3. LISINOPRIL [Concomitant]
  4. ASPIRIN [Concomitant]

REACTIONS (7)
  - ANXIETY [None]
  - BACK PAIN [None]
  - CONVULSION [None]
  - DEPRESSION [None]
  - LOSS OF CONSCIOUSNESS [None]
  - REFUSAL OF TREATMENT BY PATIENT [None]
  - SPINAL COMPRESSION FRACTURE [None]
